FAERS Safety Report 6873928-0 (Version None)
Quarter: 2010Q3

REPORT INFORMATION
  Report Type: 
  Country: None (occurrence: None)
  Receive Date: 20100723
  Receipt Date: 20090616
  Transmission Date: 20110219
  Serious: No
  Sender: FDA-Public Use
  Company Number: US-PFIZER INC-2009183849

PATIENT
  Sex: Female
  Weight: 87.1 kg

DRUGS (13)
  1. CHANTIX [Suspect]
     Indication: SMOKING CESSATION THERAPY
     Dosage: 0.5 MG, 2X/DAY
     Dates: start: 20090101, end: 20090101
  2. ULTRAM [Concomitant]
     Dosage: UNK
  3. ZANAFLEX [Concomitant]
     Dosage: UNK
  4. SULINDAC [Concomitant]
     Dosage: UNK
  5. ACTONEL [Concomitant]
     Dosage: UNK
  6. DIAZEPAM [Concomitant]
     Dosage: UNK
  7. PRINZIDE [Concomitant]
     Dosage: UNK
  8. LEVOTHYROXINE SODIUM [Concomitant]
     Dosage: UNK
  9. LOVASTATIN [Concomitant]
     Dosage: UNK
  10. MONTELUKAST SODIUM [Concomitant]
     Dosage: UNK
  11. PREMARIN [Concomitant]
     Dosage: UNK
  12. ESTRADIOL CIPIONATE [Concomitant]
     Dosage: UNK
  13. CETIRIZINE HCL AND PSEUDOEPHEDRINE [Concomitant]
     Dosage: UNK

REACTIONS (3)
  - ABNORMAL SLEEP-RELATED EVENT [None]
  - MIDDLE INSOMNIA [None]
  - SLEEP TALKING [None]
